FAERS Safety Report 13187536 (Version 1)
Quarter: 2017Q1

REPORT INFORMATION
  Report Type: Spontaneous
  Country: BR (occurrence: BR)
  Receive Date: 20170206
  Receipt Date: 20170206
  Transmission Date: 20170428
  Serious: Yes (Death, Other)
  Sender: FDA-Public Use
  Company Number: BR-009507513-1702BRA001197

PATIENT
  Sex: Male

DRUGS (2)
  1. TEMODAL [Suspect]
     Active Substance: TEMOZOLOMIDE
     Indication: GLIOBLASTOMA MULTIFORME
     Dosage: FIRST CYCLE: 160 MG, FOR 40 DAYS + RADIOTHERAPY
  2. TEMODAL [Suspect]
     Active Substance: TEMOZOLOMIDE
     Dosage: SUBSEQUENTLY 400 MG CYCLE OF 28 DAYS

REACTIONS (1)
  - Glioblastoma multiforme [Fatal]
